FAERS Safety Report 13206189 (Version 1)
Quarter: 2017Q1

REPORT INFORMATION
  Report Type: Spontaneous
  Country: US (occurrence: US)
  Receive Date: 20170209
  Receipt Date: 20170209
  Transmission Date: 20170428
  Serious: Yes (Other)
  Sender: FDA-Public Use
  Company Number: US-SA-2017SA020646

PATIENT
  Age: 71 Year
  Sex: Female
  Weight: 81.64 kg

DRUGS (4)
  1. ALIROCUMAB PREFILLED PEN [Concomitant]
     Active Substance: ALIROCUMAB
  2. PRALUENT [Suspect]
     Active Substance: ALIROCUMAB
     Dosage: ROUTE- UNDER THE SKIN
  3. ALIROCUMAB PREFILLED PEN [Concomitant]
     Active Substance: ALIROCUMAB
  4. PRALUENT [Suspect]
     Active Substance: ALIROCUMAB
     Dosage: ROUTE- UNDER THE SKIN?DOSE TO 150MG OF PRALUENT(2 75MG INJECTIONS)

REACTIONS (6)
  - Injection site mass [Recovering/Resolving]
  - Pneumonia [Recovering/Resolving]
  - Influenza like illness [Recovering/Resolving]
  - Injection site pruritus [Recovering/Resolving]
  - Therapeutic response decreased [Unknown]
  - Sputum discoloured [Recovering/Resolving]

NARRATIVE: CASE EVENT DATE: 201701
